FAERS Safety Report 12316336 (Version 1)
Quarter: 2016Q2

REPORT INFORMATION
  Report Type: Spontaneous
  Country: JP (occurrence: JP)
  Receive Date: 20160429
  Receipt Date: 20160429
  Transmission Date: 20160815
  Serious: Yes (Hospitalization, Other)
  Sender: FDA-Public Use
  Company Number: JP-MACLEODS PHARMACEUTICALS US LTD-MAC2016002686

PATIENT

DRUGS (2)
  1. CLOPIDOGREL [Suspect]
     Active Substance: CLOPIDOGREL BISULFATE
     Indication: PROPHYLAXIS
  2. CLOPIDOGREL [Suspect]
     Active Substance: CLOPIDOGREL BISULFATE
     Indication: CEREBRAL INFARCTION
     Dosage: 75 MG, QD
     Route: 065

REACTIONS (20)
  - Nausea [Recovering/Resolving]
  - Thrombotic microangiopathy [Recovering/Resolving]
  - Cardiomegaly [Recovering/Resolving]
  - Ocular icterus [Recovering/Resolving]
  - Thrombocytopenia [Recovering/Resolving]
  - Decreased appetite [Recovering/Resolving]
  - Fatigue [Recovering/Resolving]
  - Haemolytic anaemia [Recovering/Resolving]
  - Haematuria [Recovering/Resolving]
  - Renal failure [Recovering/Resolving]
  - Hypokinesia [Recovering/Resolving]
  - Condition aggravated [Recovering/Resolving]
  - Bilirubinuria [Recovering/Resolving]
  - Oliguria [Recovering/Resolving]
  - Chromaturia [Recovering/Resolving]
  - Proteinuria [Recovering/Resolving]
  - Purpura [Recovering/Resolving]
  - Ascites [Recovering/Resolving]
  - Pleural effusion [Recovering/Resolving]
  - Generalised oedema [Recovering/Resolving]
